FAERS Safety Report 5963663-5 (Version None)
Quarter: 2008Q4

REPORT INFORMATION
  Report Type: 
  Country: None (occurrence: None)
  Receive Date: 20081124
  Receipt Date: 20081113
  Transmission Date: 20090506
  Serious: Yes (Hospitalization)
  Sender: FDA-Public Use
  Company Number: US-ELI_LILLY_AND_COMPANY-US200811003320

PATIENT
  Sex: Female

DRUGS (9)
  1. BYETTA [Suspect]
     Indication: TYPE 2 DIABETES MELLITUS
     Dosage: UNK, UNKNOWN
  2. BYETTA [Suspect]
     Dosage: 5 UG, 2/D
     Route: 058
     Dates: start: 20081104, end: 20081112
  3. METFORMIN HCL [Concomitant]
     Dosage: 1000 MG, 2/D
  4. GLUCOVANCE [Concomitant]
     Dosage: UNK, UNKNOWN
  5. COUMADIN [Concomitant]
     Dosage: 4 MG, DAILY (1/D)
  6. INDERAL [Concomitant]
     Dosage: 20 MG, 2/D
  7. ZETIA [Concomitant]
     Dosage: 10 MG, DAILY (1/D)
  8. LESCOL XL [Concomitant]
     Dosage: 80 MG, DAILY (1/D)
  9. LOTREL [Concomitant]
     Dosage: UNK, UNKNOWN

REACTIONS (1)
  - ATRIAL FIBRILLATION [None]
